FAERS Safety Report 5845707-4 (Version None)
Quarter: 2008Q3

REPORT INFORMATION
  Report Type: 
  Country: None (occurrence: None)
  Receive Date: 20080814
  Receipt Date: 20080805
  Transmission Date: 20090109
  Serious: Yes (Other)
  Sender: FDA-Public Use
  Company Number: PHHY2008GB17360

PATIENT

DRUGS (1)
  1. FEMARA [Suspect]

REACTIONS (7)
  - DIZZINESS [None]
  - ELECTROCARDIOGRAM QT PROLONGED [None]
  - HEADACHE [None]
  - HEART RATE IRREGULAR [None]
  - TACHYCARDIA [None]
  - VENTRICULAR TACHYCARDIA [None]
  - VISUAL IMPAIRMENT [None]
